FAERS Safety Report 6257526-8 (Version None)
Quarter: 2009Q3

REPORT INFORMATION
  Report Type: 
  Country: None (occurrence: None)
  Receive Date: 20090706
  Receipt Date: 20090625
  Transmission Date: 20100115
  Serious: Yes (Hospitalization)
  Sender: FDA-Public Use
  Company Number: US-AVENTIS-200915166US

PATIENT
  Sex: Male
  Weight: 66.68 kg

DRUGS (1)
  1. LOVENOX [Suspect]
     Indication: THROMBOSIS PROPHYLAXIS
     Dates: start: 20090602

REACTIONS (2)
  - CELLULITIS [None]
  - POST PROCEDURAL INFECTION [None]
